FAERS Safety Report 16332037 (Version 1)
Quarter: 2019Q2

REPORT INFORMATION
  Report Type: Spontaneous
  Country: US (occurrence: US)
  Receive Date: 20190412
  Receipt Date: 20190412
  Transmission Date: 20190711
  Serious: No
  Sender: FDA-Public Use
  Company Number: None

PATIENT
  Age: 60 Year
  Sex: Female

DRUGS (1)
  1. LETROZOLE++ 2.5 MG TEVPHARMACEUTICALS USA [Suspect]
     Active Substance: LETROZOLE
     Indication: BREAST CANCER
     Route: 048
     Dates: start: 20180924

REACTIONS (4)
  - Scratch [None]
  - Skin ulcer [None]
  - Dry skin [None]
  - Pruritus [None]

NARRATIVE: CASE EVENT DATE: 201812
